FAERS Safety Report 7936269-6 (Version None)
Quarter: 2011Q4

REPORT INFORMATION
  Report Type: 
  Country: None (occurrence: None)
  Receive Date: 20111123
  Receipt Date: 20111115
  Transmission Date: 20120403
  Serious: Yes (Other)
  Sender: FDA-Public Use
  Company Number: US-JNJFOC-20111106639

PATIENT
  Sex: Female
  Weight: 66.23 kg

DRUGS (5)
  1. REMICADE [Suspect]
     Indication: CROHN'S DISEASE
     Route: 042
  2. CIPROFLOXACIN [Concomitant]
     Indication: CROHN'S DISEASE
     Route: 048
     Dates: start: 20111020
  3. METRONIDAZOLE [Concomitant]
     Indication: CROHN'S DISEASE
     Route: 048
     Dates: start: 20111020
  4. REMICADE [Suspect]
     Route: 042
     Dates: start: 20111001, end: 20111101
  5. PREDNISONE TAB [Concomitant]
     Indication: CROHN'S DISEASE
     Route: 048
     Dates: start: 20111013, end: 20111113

REACTIONS (8)
  - RASH [None]
  - PHARYNGEAL OEDEMA [None]
  - ARTHRALGIA [None]
  - URTICARIA [None]
  - ADVERSE EVENT [None]
  - BACK PAIN [None]
  - DYSPNOEA [None]
  - DRUG INEFFECTIVE [None]
